FAERS Safety Report 6545121-2 (Version None)
Quarter: 2010Q1

REPORT INFORMATION
  Report Type: 
  Country: None (occurrence: None)
  Receive Date: 20100115
  Receipt Date: 20100107
  Transmission Date: 20100710
  Serious: Yes (Death)
  Sender: FDA-Public Use
  Company Number: ALK_01123_2010

PATIENT
  Age: 23 Year
  Sex: Female

DRUGS (1)
  1. VIVITROL [Suspect]
     Indication: DRUG USE FOR UNKNOWN INDICATION
     Dosage: (380 MG 1X/MONTH INTRAMUSCULAR)
     Route: 030

REACTIONS (1)
  - DEATH [None]
